FAERS Safety Report 15159445 (Version 2)
Quarter: 2018Q3

REPORT INFORMATION
  Report Type: Spontaneous
  Country: FR (occurrence: FR)
  Receive Date: 20180718
  Receipt Date: 20180904
  Transmission Date: 20181010
  Serious: Yes (Hospitalization)
  Sender: FDA-Public Use
  Company Number: FR-JNJFOC-20180715387

PATIENT
  Age: 43 Year
  Sex: Male
  Weight: 66 kg

DRUGS (21)
  1. DEFERASIROX [Concomitant]
     Active Substance: DEFERASIROX
     Route: 065
  2. HYDROCORTISONE. [Concomitant]
     Active Substance: HYDROCORTISONE
     Route: 065
  3. MOVICOL [Concomitant]
     Active Substance: POLYETHYLENE GLYCOL 3350\POTASSIUM CHLORIDE\SODIUM BICARBONATE\SODIUM CHLORIDE
     Route: 065
  4. SULFAMETHOXAZOLE AND TRIMETHOPRIM [Concomitant]
     Active Substance: SULFAMETHOXAZOLE\TRIMETHOPRIM
     Route: 065
  5. SMECTA [Concomitant]
     Active Substance: MONTMORILLONITE
     Route: 065
  6. POVIDONE [Concomitant]
     Active Substance: POVIDONE
     Route: 065
  7. PANTOPRAZOLE [Concomitant]
     Active Substance: PANTOPRAZOLE
     Route: 065
  8. IMBRUVICA [Suspect]
     Active Substance: IBRUTINIB
     Indication: LEUKOERYTHROBLASTIC ANAEMIA
     Route: 048
     Dates: start: 20180522, end: 20180717
  9. POTASSIUM CHLORIDE. [Concomitant]
     Active Substance: POTASSIUM CHLORIDE
     Route: 065
  10. TRAMADOL. [Concomitant]
     Active Substance: TRAMADOL
     Route: 065
  11. SODIUM BICARBONATE. [Concomitant]
     Active Substance: SODIUM BICARBONATE
     Route: 065
  12. SYMBICORT [Concomitant]
     Active Substance: BUDESONIDE\FORMOTEROL FUMARATE DIHYDRATE
     Route: 065
  13. TRUXIMA [Suspect]
     Active Substance: RITUXIMAB
     Indication: GRAFT VERSUS HOST DISEASE
     Dosage: 600 MG PAR CURES
     Route: 042
     Dates: start: 20180416, end: 20180607
  14. CHLOROBUTANOL HEMIHYDRATE [Concomitant]
     Route: 065
  15. ZYMAD [Concomitant]
     Active Substance: CHOLECALCIFEROL
     Route: 065
  16. GAVISCON [Concomitant]
     Active Substance: ALUMINUM HYDROXIDE\MAGNESIUM CARBONATE
     Route: 065
  17. VITAMINE A [Concomitant]
     Active Substance: RETINOL
     Route: 065
  18. URSODESOXYCHOLIC ACID [Concomitant]
     Active Substance: URSODIOL
     Route: 065
  19. ZELITREX [Concomitant]
     Active Substance: VALACYCLOVIR HYDROCHLORIDE
     Route: 065
  20. ACTRAPID MC [Concomitant]
     Active Substance: INSULIN PORK\INSULIN PURIFIED PORK
     Route: 065
  21. ORACILLINE [Concomitant]
     Active Substance: PENICILLIN V
     Route: 065

REACTIONS (4)
  - Pericarditis [Recovering/Resolving]
  - Pleurisy [Recovering/Resolving]
  - Product use in unapproved indication [Unknown]
  - Off label use [Unknown]

NARRATIVE: CASE EVENT DATE: 20180522
